FAERS Safety Report 20967397 (Version 1)
Quarter: 2022Q2

REPORT INFORMATION
  Report Type: Spontaneous
  Country: US (occurrence: None)
  Receive Date: 20220616
  Receipt Date: 20220616
  Transmission Date: 20220721
  Serious: Yes (Life-Threatening, Hospitalization, Other)
  Sender: FDA-Public Use
  Company Number: None

PATIENT
  Age: 64 Year
  Sex: Female
  Weight: 100 kg

DRUGS (15)
  1. BACTRIM [Suspect]
     Active Substance: SULFAMETHOXAZOLE\TRIMETHOPRIM
     Indication: Urinary tract infection
     Dosage: FREQUENCY : TWICE A DAY;?
     Route: 048
     Dates: start: 20220603, end: 20220605
  2. Albuterol HFA 90 mcg/inh inhalation 1 puff every 6 hours PRN [Concomitant]
  3. Amantadine 100 mg PO QD [Concomitant]
  4. Aspirin 81 mg PO QD [Concomitant]
  5. Atorvastatin 40 mg PO QD [Concomitant]
  6. Bromocriptine 2.5 mg PO BID [Concomitant]
  7. Clopidogrel 75 mg PO QD [Concomitant]
  8. Jardiance 25 mg PO QD [Concomitant]
  9. Escitalopram 5 mg PO QD [Concomitant]
  10. Breo Ellipta 100 mcg/25 mcg inhalation 1 puff QD [Concomitant]
  11. Gabapentin 300 mg PO TID [Concomitant]
  12. Levothyroxine 100 mcg PO QD [Concomitant]
  13. Metformin 1000 mg PO BID [Concomitant]
  14. PANTOPRAZOLE SODIUM [Concomitant]
     Active Substance: PANTOPRAZOLE SODIUM
  15. Trazodone 50 mg PO QHS [Concomitant]

REACTIONS (7)
  - Skin lesion [None]
  - Lip swelling [None]
  - Swollen tongue [None]
  - Anaphylactic reaction [None]
  - Drug ineffective [None]
  - Wheezing [None]
  - Swelling face [None]

NARRATIVE: CASE EVENT DATE: 20220606
